FAERS Safety Report 6613357-8 (Version None)
Quarter: 2010Q1

REPORT INFORMATION
  Report Type: 
  Country: None (occurrence: None)
  Receive Date: 20100304
  Receipt Date: 20100226
  Transmission Date: 20100710
  Serious: Yes (Death)
  Sender: FDA-Public Use
  Company Number: PHHY2010MX11728

PATIENT
  Sex: Female

DRUGS (4)
  1. TEGRETOL [Suspect]
     Indication: EPILEPSY
     Dosage: 20 MG/ML, DAILY
     Route: 048
  2. CATAFLAM [Suspect]
     Dosage: 180 MG, UNK
  3. CATAFLAM [Suspect]
  4. CATAFLAM [Suspect]

REACTIONS (1)
  - RESPIRATORY ARREST [None]
